FAERS Safety Report 16703566 (Version 6)
Quarter: 2019Q4

REPORT INFORMATION
  Report Type: Report from Study
  Country: US (occurrence: US)
  Receive Date: 20190814
  Receipt Date: 20191112
  Transmission Date: 20200122
  Serious: Yes (Hospitalization, Other)
  Sender: FDA-Public Use
  Company Number: PHHY2019US187387

PATIENT
  Age: 67 Year
  Sex: Female
  Weight: 68.6 kg

DRUGS (9)
  1. INSTAFLEX JOINT SUPPORT [Concomitant]
     Indication: ARTHRALGIA
     Dosage: 1 DF, UNK
     Route: 065
     Dates: start: 20190727, end: 20190728
  2. ESTRADIOL. [Concomitant]
     Active Substance: ESTRADIOL
     Indication: MENOPAUSE
     Dosage: 1 MG, QD
     Route: 065
     Dates: start: 200609
  3. GILENYA [Suspect]
     Active Substance: FINGOLIMOD HYDROCHLORIDE
     Indication: MULTIPLE SCLEROSIS
     Dosage: UNK, QD
     Route: 048
     Dates: start: 20141203, end: 20150707
  4. OXYBUTIN [Concomitant]
     Active Substance: OXYBUTYNIN
     Indication: URINARY INCONTINENCE
     Dosage: 5 MG, TID
     Route: 065
     Dates: start: 20090720
  5. SERTRALINE [Concomitant]
     Active Substance: SERTRALINE HYDROCHLORIDE
     Indication: DEPRESSION
     Dosage: 50 MG, QD
     Route: 065
     Dates: start: 2009
  6. PRILOSEC [Concomitant]
     Active Substance: OMEPRAZOLE MAGNESIUM
     Indication: GASTROOESOPHAGEAL REFLUX DISEASE
     Dosage: 40 MG, QD
     Route: 065
     Dates: start: 1995
  7. BACLOFEN. [Concomitant]
     Active Substance: BACLOFEN
     Indication: MUSCLE SPASTICITY
     Dosage: 10 MG, QD
     Route: 065
     Dates: start: 2007
  8. AMPYRA [Concomitant]
     Active Substance: DALFAMPRIDINE
     Indication: MULTIPLE SCLEROSIS
     Dosage: 10 MG, BID
     Route: 065
     Dates: start: 2009
  9. MECLIZINE [Concomitant]
     Active Substance: MECLIZINE HYDROCHLORIDE
     Indication: VERTIGO
     Dosage: UNK
     Route: 065
     Dates: start: 20150721, end: 20150804

REACTIONS (22)
  - Vitreous adhesions [Unknown]
  - Confusional state [Recovered/Resolved]
  - Lymphopenia [Recovered/Resolved]
  - Blood alkaline phosphatase increased [Unknown]
  - Visual impairment [Unknown]
  - Haematoma [Unknown]
  - Fall [Unknown]
  - Exostosis [Unknown]
  - Seizure [Recovered/Resolved]
  - Skin laceration [Unknown]
  - Purpura senile [Unknown]
  - Blood glucose increased [Unknown]
  - Seborrhoeic keratosis [Unknown]
  - Haemangioma of skin [Unknown]
  - White blood cell count increased [Unknown]
  - Melanocytic naevus [Unknown]
  - Dizziness postural [Recovered/Resolved]
  - Contusion [Recovered/Resolved]
  - Deafness [Unknown]
  - Low density lipoprotein increased [Unknown]
  - White blood cell count decreased [Unknown]
  - Epistaxis [Recovered/Resolved]

NARRATIVE: CASE EVENT DATE: 20141204
